FAERS Safety Report 4918841-0 (Version None)
Quarter: 2006Q1

REPORT INFORMATION
  Report Type: 
  Country: None (occurrence: None)
  Receive Date: 20060222
  Receipt Date: 20050609
  Transmission Date: 20060701
  Serious: Yes (Hospitalization, Disabling, Other)
  Sender: FDA-Public Use
  Company Number: US-MERCK-0506USA01566

PATIENT
  Age: 70 Year
  Sex: Male
  Weight: 91 kg

DRUGS (8)
  1. VIOXX [Suspect]
     Indication: INFLAMMATION
     Route: 048
     Dates: start: 20040201, end: 20040101
  2. VIOXX [Suspect]
     Indication: ARTHRITIS
     Route: 048
     Dates: start: 20040201, end: 20040101
  3. [THERAPY UNSPECIFIED] [Concomitant]
     Route: 065
  4. TIMOPTIC [Concomitant]
     Route: 065
  5. LISINOPRIL-BC [Concomitant]
     Route: 065
  6. PREVACID [Concomitant]
     Route: 065
  7. ASPIRIN [Concomitant]
     Route: 065
  8. COUMADIN [Suspect]
     Route: 065

REACTIONS (13)
  - BLOOD HOMOCYSTEINE INCREASED [None]
  - DEEP VEIN THROMBOSIS [None]
  - INTERMITTENT CLAUDICATION [None]
  - LABYRINTHITIS [None]
  - NEUROPATHY PERIPHERAL [None]
  - OSTEOARTHRITIS [None]
  - PROSTATE EXAMINATION ABNORMAL [None]
  - PULMONARY EMBOLISM [None]
  - SEBORRHOEIC KERATOSIS [None]
  - SKIN CANCER [None]
  - SKIN HAEMORRHAGE [None]
  - SKIN LACERATION [None]
  - VENOUS INSUFFICIENCY [None]
